FAERS Safety Report 9505533 (Version 1)
Quarter: 2013Q1

REPORT INFORMATION
  Report Type: Spontaneous
  Country: US (occurrence: None)
  Receive Date: 20130220
  Receipt Date: 20130220
  Transmission Date: 20140127
  Serious: No
  Sender: FDA-Public Use
  Company Number: 1000039704

PATIENT
  Age: 41 Year
  Sex: Female

DRUGS (1)
  1. VIIBYRD (VILAZODONE HYDROCHLORIDE) (TABLETS) [Suspect]
     Dosage: 10 MG (10 MG, 1 IN 1 D), ORAL
     Route: 048
     Dates: start: 201205, end: 2012

REACTIONS (11)
  - Diarrhoea [None]
  - Abdominal distension [None]
  - Weight increased [None]
  - Fatigue [None]
  - Pruritus [None]
  - Metrorrhagia [None]
  - Libido decreased [None]
  - Orgasm abnormal [None]
  - Abnormal dreams [None]
  - Paraesthesia [None]
  - Arthralgia [None]
